FAERS Safety Report 13641658 (Version 1)
Quarter: 2017Q2

REPORT INFORMATION
  Report Type: Spontaneous
  Country: DE (occurrence: DE)
  Receive Date: 20170612
  Receipt Date: 20170612
  Transmission Date: 20170830
  Serious: Yes (Life-Threatening, Other)
  Sender: FDA-Public Use
  Company Number: DE-SEPTODONT-201704092

PATIENT
  Age: 52 Year
  Sex: Female

DRUGS (1)
  1. SEPTANEST MIT EPINEPHRIN 40 MG/ML + 0.01 MG/ML, INJEKTIONSL?SUNG [Suspect]
     Active Substance: ARTICAINE HYDROCHLORIDE\EPINEPHRINE BITARTRATE
     Indication: LOCAL ANAESTHESIA
     Dosage: UNIQUE APPLICATION SUBMUCOSAL
     Route: 004

REACTIONS (4)
  - Respiratory distress [Unknown]
  - Blood pressure increased [Unknown]
  - Circulatory collapse [Unknown]
  - Hyperhidrosis [Unknown]

NARRATIVE: CASE EVENT DATE: 20170223
